FAERS Safety Report 7421804-7 (Version None)
Quarter: 2011Q2

REPORT INFORMATION
  Report Type: 
  Country: None (occurrence: None)
  Receive Date: 20110418
  Receipt Date: 20110411
  Transmission Date: 20111010
  Serious: Yes (Other)
  Sender: FDA-Public Use
  Company Number: US-US-EMD SERONO, INC.-7053455

PATIENT
  Sex: Female

DRUGS (1)
  1. REBIF [Suspect]
     Indication: PRODUCT USED FOR UNKNOWN INDICATION
     Dates: end: 20101201

REACTIONS (4)
  - PANIC REACTION [None]
  - BACK PAIN [None]
  - SPINAL FUSION SURGERY [None]
  - ROAD TRAFFIC ACCIDENT [None]
